FAERS Safety Report 11640541 (Version 3)
Quarter: 2015Q4

REPORT INFORMATION
  Report Type: Report from Study
  Country: DE (occurrence: DE)
  Receive Date: 20151019
  Receipt Date: 20151229
  Transmission Date: 20160304
  Serious: Yes (Hospitalization, Other)
  Sender: FDA-Public Use
  Company Number: DE-ABBVIE-15P-062-1479479-00

PATIENT
  Age: 57 Year
  Sex: Male
  Weight: 120 kg

DRUGS (13)
  1. QUETIAPINE [Concomitant]
     Active Substance: QUETIAPINE
     Indication: PRODUCT USED FOR UNKNOWN INDICATION
  2. FOLIC ACID. [Concomitant]
     Active Substance: FOLIC ACID
     Indication: PRODUCT USED FOR UNKNOWN INDICATION
  3. METFORMIN [Concomitant]
     Active Substance: METFORMIN HYDROCHLORIDE
     Indication: PRODUCT USED FOR UNKNOWN INDICATION
  4. DUODOPA [Suspect]
     Active Substance: CARBIDOPA\LEVODOPA
     Indication: PARKINSON^S DISEASE
     Dosage: MD 12.0ML, CRD 4.0ML, ED 2.0ML
     Route: 050
     Dates: start: 20150618, end: 201510
  5. DUODOPA [Suspect]
     Active Substance: CARBIDOPA\LEVODOPA
     Dosage: MD 12.0ML, CRD 4.0ML, ED 2.0ML
     Route: 050
     Dates: start: 201510
  6. DUODOPA [Suspect]
     Active Substance: CARBIDOPA\LEVODOPA
     Dosage: MD: 12 ML, CRD: 4.6 - 4.8 ML/H, ED: 2.5 ML
     Route: 050
  7. MOTILIUM [Concomitant]
     Active Substance: DOMPERIDONE
     Indication: PRODUCT USED FOR UNKNOWN INDICATION
  8. METFORMINE [Concomitant]
     Active Substance: METFORMIN HYDROCHLORIDE
     Indication: PRODUCT USED FOR UNKNOWN INDICATION
     Route: 048
  9. INSULIN [Concomitant]
     Active Substance: INSULIN NOS
     Indication: PRODUCT USED FOR UNKNOWN INDICATION
     Route: 058
  10. METHOTREXATE [Concomitant]
     Active Substance: METHOTREXATE
     Indication: PRODUCT USED FOR UNKNOWN INDICATION
  11. FOLIC ACID. [Concomitant]
     Active Substance: FOLIC ACID
     Indication: PRODUCT USED FOR UNKNOWN INDICATION
     Route: 048
  12. LEVOCOMP [Concomitant]
     Active Substance: CARBIDOPA\LEVODOPA
     Indication: PRODUCT USED FOR UNKNOWN INDICATION
  13. CYMBALTA [Concomitant]
     Active Substance: DULOXETINE HYDROCHLORIDE
     Indication: PRODUCT USED FOR UNKNOWN INDICATION

REACTIONS (20)
  - Drug effect variable [Unknown]
  - General physical health deterioration [Unknown]
  - Hypokinesia [Unknown]
  - Device dislocation [Unknown]
  - Spinal column stenosis [Not Recovered/Not Resolved]
  - Hypomania [Unknown]
  - Genital tract inflammation [Not Recovered/Not Resolved]
  - Dysstasia [Unknown]
  - Akinesia [Not Recovered/Not Resolved]
  - Pneumonia aspiration [Unknown]
  - On and off phenomenon [Unknown]
  - Hyperkinesia [Unknown]
  - Chills [Unknown]
  - Cough [Recovered/Resolved]
  - Hypertonia [Unknown]
  - Speech disorder [Unknown]
  - C-reactive protein increased [Unknown]
  - Device kink [Unknown]
  - Gait disturbance [Unknown]
  - Parkinson^s disease [Not Recovered/Not Resolved]

NARRATIVE: CASE EVENT DATE: 201509
